FAERS Safety Report 5374756-8 (Version None)
Quarter: 2007Q2

REPORT INFORMATION
  Report Type: 
  Country: None (occurrence: None)
  Receive Date: 20070629
  Receipt Date: 20061130
  Transmission Date: 20071010
  Serious: Yes (Hospitalization)
  Sender: FDA-Public Use
  Company Number: PHMT2006CA02002

PATIENT
  Age: 46 Year
  Sex: Female
  Weight: 130 kg

DRUGS (6)
  1. SEROQUEL [Concomitant]
     Dosage: 600 MG, QHS
  2. DALMANE [Concomitant]
     Dosage: 30 MG, QHS
  3. RIVOTRIL [Concomitant]
     Dosage: 0.5 MG, BID
  4. RIVOTRIL [Concomitant]
     Dosage: 1 MG, QHS
  5. CLOZARIL [Suspect]
     Dosage: 100 MG, UNK
     Route: 048
     Dates: start: 20050728, end: 20061130
  6. CLOZARIL [Suspect]
     Dosage: 100 MG, UNK
     Route: 048

REACTIONS (4)
  - APPENDICITIS [None]
  - APPENDICITIS PERFORATED [None]
  - CONSTIPATION [None]
  - SURGERY [None]
